FAERS Safety Report 17038826 (Version 1)
Quarter: 2019Q4

REPORT INFORMATION
  Report Type: Spontaneous
  Country: US (occurrence: US)
  Receive Date: 20191016
  Receipt Date: 20191016
  Transmission Date: 20200122
  Serious: No
  Sender: FDA-Public Use
  Company Number: None

PATIENT
  Age: 67 Year
  Sex: Female

DRUGS (1)
  1. IBRANCE [Suspect]
     Active Substance: PALBOCICLIB
     Route: 048
     Dates: start: 201903

REACTIONS (4)
  - Increased appetite [None]
  - Feeling abnormal [None]
  - Abdominal discomfort [None]
  - Weight increased [None]

NARRATIVE: CASE EVENT DATE: 20190301
